FAERS Safety Report 25841153 (Version 1)
Quarter: 2025Q3

REPORT INFORMATION
  Report Type: Spontaneous
  Country: US (occurrence: US)
  Receive Date: 20250924
  Receipt Date: 20250924
  Transmission Date: 20251021
  Serious: No
  Sender: ELI LILLY AND COMPANY
  Company Number: US-ELI_LILLY_AND_COMPANY-US202509020048

PATIENT
  Age: 56 Year
  Sex: Female

DRUGS (12)
  1. ZEPBOUND [Suspect]
     Active Substance: TIRZEPATIDE
     Indication: Dermatitis
     Route: 058
     Dates: start: 20250904, end: 20250911
  2. ZEPBOUND [Suspect]
     Active Substance: TIRZEPATIDE
     Indication: Dermatitis
     Route: 058
     Dates: start: 20250904, end: 20250911
  3. ZEPBOUND [Suspect]
     Active Substance: TIRZEPATIDE
     Indication: Dermatitis
     Route: 058
     Dates: start: 20250904, end: 20250911
  4. ZEPBOUND [Suspect]
     Active Substance: TIRZEPATIDE
     Indication: Dermatitis
     Route: 058
     Dates: start: 20250904, end: 20250911
  5. ZEPBOUND [Suspect]
     Active Substance: TIRZEPATIDE
     Route: 058
  6. ZEPBOUND [Suspect]
     Active Substance: TIRZEPATIDE
     Route: 058
  7. ZEPBOUND [Suspect]
     Active Substance: TIRZEPATIDE
     Route: 058
  8. ZEPBOUND [Suspect]
     Active Substance: TIRZEPATIDE
     Route: 058
  9. ZEPBOUND [Suspect]
     Active Substance: TIRZEPATIDE
     Route: 058
  10. ZEPBOUND [Suspect]
     Active Substance: TIRZEPATIDE
     Route: 058
  11. ZEPBOUND [Suspect]
     Active Substance: TIRZEPATIDE
     Route: 058
  12. ZEPBOUND [Suspect]
     Active Substance: TIRZEPATIDE
     Route: 058

REACTIONS (3)
  - Rash papular [Recovered/Resolved]
  - Off label use [Unknown]
  - Injection site erythema [Unknown]

NARRATIVE: CASE EVENT DATE: 20250904
